FAERS Safety Report 13065854 (Version 2)
Quarter: 2017Q1

REPORT INFORMATION
  Report Type: Spontaneous
  Country: DE (occurrence: DE)
  Receive Date: 20161227
  Receipt Date: 20170120
  Transmission Date: 20170428
  Serious: Yes (Disabling, Other)
  Sender: FDA-Public Use
  Company Number: DE-009507513-1612DEU013775

PATIENT
  Age: 36 Year
  Sex: Female

DRUGS (1)
  1. IMPLANON [Suspect]
     Active Substance: ETONOGESTREL
     Indication: CONTRACEPTION
     Dosage: 1 DF, Q 3 YEARS
     Route: 058
     Dates: start: 20160429

REACTIONS (2)
  - Median nerve injury [Unknown]
  - Burning sensation [Unknown]

NARRATIVE: CASE EVENT DATE: 20160429
